FAERS Safety Report 9300758 (Version 1)
Quarter: 2013Q2

REPORT INFORMATION
  Report Type: Spontaneous
  Country: US (occurrence: US)
  Receive Date: 20130521
  Receipt Date: 20130521
  Transmission Date: 20140414
  Serious: No
  Sender: FDA-Public Use
  Company Number: US-009507513-1305USA012034

PATIENT
  Sex: Female

DRUGS (2)
  1. PROVENTIL [Suspect]
     Indication: LUNG DISORDER
     Route: 055
  2. FLOVENT [Suspect]
     Indication: LUNG DISORDER

REACTIONS (2)
  - Tremor [Unknown]
  - Feeling jittery [Unknown]
